FAERS Safety Report 15498812 (Version 3)
Quarter: 2018Q4

REPORT INFORMATION
  Report Type: Spontaneous
  Country: US (occurrence: US)
  Receive Date: 20181015
  Receipt Date: 20181219
  Transmission Date: 20190205
  Serious: Yes (Other)
  Sender: FDA-Public Use
  Company Number: US-BAYER-2018-191550

PATIENT
  Age: 28 Year
  Sex: Female
  Weight: 63.95 kg

DRUGS (3)
  1. MIRENA [Suspect]
     Active Substance: LEVONORGESTREL
     Indication: CONTRACEPTION
     Dosage: 20 MCG/24HR, CONT
     Route: 015
     Dates: start: 20170125, end: 20181017
  2. MIRENA [Suspect]
     Active Substance: LEVONORGESTREL
     Indication: CONTRACEPTION
     Dosage: 20 MCG/24HR, CONT
     Route: 015
     Dates: start: 20181017
  3. MIRENA [Suspect]
     Active Substance: LEVONORGESTREL
     Indication: CONTRACEPTION

REACTIONS (11)
  - Genital haemorrhage [None]
  - Device expulsion [None]
  - Vulvovaginal discomfort [None]
  - Vaginal odour [None]
  - Abdominal pain [None]
  - Pyrexia [None]
  - Abdominal pain lower [None]
  - Vulvovaginal candidiasis [None]
  - Vaginal haemorrhage [None]
  - Pelvic pain [None]
  - Vaginal discharge [None]

NARRATIVE: CASE EVENT DATE: 20070921
